FAERS Safety Report 25263530 (Version 1)
Quarter: 2025Q2

REPORT INFORMATION
  Report Type: Report from Study
  Country: US (occurrence: US)
  Receive Date: 20250502
  Receipt Date: 20250502
  Transmission Date: 20250717
  Serious: Yes (Other)
  Sender: JOHNSON AND JOHNSON
  Company Number: US-JNJFOC-20250435620

PATIENT
  Age: 41 Year
  Sex: Female

DRUGS (10)
  1. SPRAVATO [Suspect]
     Active Substance: ESKETAMINE
     Indication: Depression
     Dates: start: 20220909, end: 20220914
  2. SPRAVATO [Suspect]
     Active Substance: ESKETAMINE
     Dates: start: 20220916, end: 20231229
  3. SPRAVATO [Suspect]
     Active Substance: ESKETAMINE
     Dates: start: 20240411, end: 20240422
  4. SPRAVATO [Suspect]
     Active Substance: ESKETAMINE
     Dates: start: 20250424, end: 20250424
  5. VRAYLAR [Concomitant]
     Active Substance: CARIPRAZINE
  6. SERTRALINE [Concomitant]
     Active Substance: SERTRALINE HYDROCHLORIDE
  7. XANAX [Concomitant]
     Active Substance: ALPRAZOLAM
  8. LAMOTRIGINE [Concomitant]
     Active Substance: LAMOTRIGINE
  9. BUSPIRONE [Concomitant]
     Active Substance: BUSPIRONE HYDROCHLORIDE
  10. DIAZEPAM [Concomitant]
     Active Substance: DIAZEPAM

REACTIONS (2)
  - Sedation [Recovered/Resolved]
  - Dissociation [Recovered/Resolved]

NARRATIVE: CASE EVENT DATE: 20250424
